FAERS Safety Report 7525970-4 (Version None)
Quarter: 2011Q2

REPORT INFORMATION
  Report Type: 
  Country: None (occurrence: None)
  Receive Date: 20110606
  Receipt Date: 20110601
  Transmission Date: 20111010
  Serious: Yes (Death)
  Sender: FDA-Public Use
  Company Number: HR-ABBOTT-11P-216-0720853-00

PATIENT
  Age: 64 Year
  Sex: Female

DRUGS (7)
  1. ZEMPLAR [Suspect]
     Indication: HYPERPARATHYROIDISM SECONDARY
     Dates: start: 20100510, end: 20100719
  2. TENOX [Concomitant]
     Indication: PRODUCT USED FOR UNKNOWN INDICATION
  3. ZEMPLAR [Suspect]
     Dates: start: 20100719
  4. NORMABEL [Concomitant]
     Indication: PRODUCT USED FOR UNKNOWN INDICATION
  5. RENAGEL [Concomitant]
     Indication: PRODUCT USED FOR UNKNOWN INDICATION
     Dosage: 4 TABLETS:1 MORNING/2 NOON/1 EVENING
  6. PANTOPRAZOLE [Concomitant]
     Indication: PRODUCT USED FOR UNKNOWN INDICATION
  7. IRUMED [Concomitant]
     Indication: PRODUCT USED FOR UNKNOWN INDICATION

REACTIONS (1)
  - CARDIAC DISORDER [None]
